FAERS Safety Report 4264347-4 (Version None)
Quarter: 2004Q1

REPORT INFORMATION
  Report Type: 
  Country: None (occurrence: None)
  Receive Date: 20040106
  Receipt Date: 20040106
  Transmission Date: 20041129
  Serious: Yes (Other)
  Sender: FDA-Public Use
  Company Number: None

PATIENT
  Age: 59 Year
  Sex: Female
  Weight: 68.0396 kg

DRUGS (1)
  1. SEREVENT [Suspect]
     Dosage: 1 INHALA EVERY 12 H RESPIRATORY
     Route: 055
     Dates: start: 20030930, end: 20031231

REACTIONS (1)
  - PHARMACEUTICAL PRODUCT COMPLAINT [None]
